FAERS Safety Report 9407000 (Version 1)
Quarter: 2013Q3

REPORT INFORMATION
  Report Type: Spontaneous
  Country: US (occurrence: US)
  Receive Date: 20130718
  Receipt Date: 20130718
  Transmission Date: 20140515
  Serious: No
  Sender: FDA-Public Use
  Company Number: US-BAYER-2013-086924

PATIENT
  Age: 69 Year
  Sex: Male
  Weight: 104 kg

DRUGS (9)
  1. ALEVE CAPLET [Suspect]
     Dosage: 1-2 TAB, BID
     Route: 048
     Dates: start: 201301
  2. LIPITOR [Concomitant]
  3. LISINOPRIL [Concomitant]
  4. ATENOLOL [Concomitant]
  5. LOPID [Concomitant]
  6. B COMPLEX [B3,B6,B2,B1 HCL] [Concomitant]
  7. FISH OIL [Concomitant]
  8. VITAMIN D3 [Concomitant]
  9. ESTER C [Concomitant]

REACTIONS (3)
  - Drug ineffective [None]
  - Incorrect drug administration duration [None]
  - Extra dose administered [None]
